FAERS Safety Report 11032781 (Version 2)
Quarter: 2015Q2

REPORT INFORMATION
  Report Type: Spontaneous
  Country: US (occurrence: US)
  Receive Date: 20150415
  Receipt Date: 20150525
  Transmission Date: 20150821
  Serious: No
  Sender: FDA-Public Use
  Company Number: US-JNJFOC-20131200455

PATIENT
  Sex: Male
  Weight: 95.26 kg

DRUGS (2)
  1. BETA-BLOCKER, NOS [Concomitant]
     Active Substance: UNSPECIFIED INGREDIENT
     Indication: ATRIAL FIBRILLATION
     Route: 048
     Dates: start: 201308
  2. XARELTO [Suspect]
     Active Substance: RIVAROXABAN
     Indication: ATRIAL FIBRILLATION
     Route: 048
     Dates: start: 201308

REACTIONS (2)
  - Tooth injury [Recovered/Resolved]
  - Dental plaque [Not Recovered/Not Resolved]

NARRATIVE: CASE EVENT DATE: 2013
